FAERS Safety Report 23433103 (Version 3)
Quarter: 2024Q1

REPORT INFORMATION
  Report Type: Spontaneous
  Country: DE (occurrence: DE)
  Receive Date: 20240123
  Receipt Date: 20240205
  Transmission Date: 20240410
  Serious: Yes (Death, Hospitalization, Other)
  Sender: FDA-Public Use
  Company Number: None

PATIENT
  Age: 43 Year
  Sex: Male
  Weight: 97 kg

DRUGS (4)
  1. OLANZAPINE [Interacting]
     Active Substance: OLANZAPINE
     Indication: Psychotic disorder
     Dosage: 20 MG
     Route: 065
     Dates: start: 20231115
  2. SERTRALINE [Interacting]
     Active Substance: SERTRALINE HYDROCHLORIDE
     Indication: Depression
     Dosage: 75 MG
     Route: 048
     Dates: start: 20231030, end: 20231115
  3. PROMETHAZINE [Suspect]
     Active Substance: PROMETHAZINE HYDROCHLORIDE
     Indication: Sleep disorder
     Route: 065
     Dates: start: 20231116
  4. LORAZEPAM [Concomitant]
     Active Substance: LORAZEPAM
     Indication: Product used for unknown indication
     Dosage: 2.5 MG
     Route: 065
     Dates: start: 20231114

REACTIONS (17)
  - Emotional poverty [Unknown]
  - Disturbance in attention [Unknown]
  - Psychomotor hyperactivity [Unknown]
  - Drowning [Fatal]
  - Illusion [Unknown]
  - Mood swings [Unknown]
  - Anxiety [Unknown]
  - Impulsive behaviour [Unknown]
  - Sleep disorder [Unknown]
  - Akathisia [Unknown]
  - Completed suicide [Fatal]
  - Hyperhidrosis [Unknown]
  - Restlessness [Unknown]
  - Psychotic disorder [Unknown]
  - Decreased appetite [Unknown]
  - Drug interaction [Unknown]
  - Suicidal ideation [Unknown]

NARRATIVE: CASE EVENT DATE: 20231101
